FAERS Safety Report 7455795-X (Version None)
Quarter: 2011Q2

REPORT INFORMATION
  Report Type: 
  Country: None (occurrence: None)
  Receive Date: 20110503
  Receipt Date: 20110420
  Transmission Date: 20111010
  Serious: Yes (Life-Threatening, Other)
  Sender: FDA-Public Use
  Company Number: PHHY2011DE11052

PATIENT
  Sex: Male

DRUGS (2)
  1. TASIGNA [Suspect]
     Indication: GASTROINTESTINAL STROMAL TUMOUR
     Dosage: 400 MG, BID
     Route: 048
     Dates: start: 20100601
  2. TASIGNA [Suspect]
     Dosage: 800 MG, BID
     Dates: start: 20110213

REACTIONS (8)
  - SLEEP DISORDER [None]
  - UNDERDOSE [None]
  - HAEMOGLOBIN DECREASED [None]
  - DRUG LEVEL DECREASED [None]
  - METASTASES TO LIVER [None]
  - DECREASED APPETITE [None]
  - GAMMA-GLUTAMYLTRANSFERASE INCREASED [None]
  - ABDOMINAL PAIN [None]
